FAERS Safety Report 7832104-5 (Version None)
Quarter: 2011Q4

REPORT INFORMATION
  Report Type: 
  Country: None (occurrence: None)
  Receive Date: 20111022
  Receipt Date: 20111018
  Transmission Date: 20120403
  Serious: Yes (Other)
  Sender: FDA-Public Use
  Company Number: FR-BAYER-2011-101572

PATIENT
  Age: 15 Month
  Sex: Male
  Weight: 10 kg

DRUGS (2)
  1. AUGMENTIN [Concomitant]
  2. CIPROFLOXACIN [Suspect]
     Dosage: 100 MG, TID
     Route: 048
     Dates: start: 20111007, end: 20111007

REACTIONS (1)
  - NO ADVERSE EVENT [None]
